FAERS Safety Report 5433841-2 (Version None)
Quarter: 2007Q3

REPORT INFORMATION
  Report Type: 
  Country: None (occurrence: None)
  Receive Date: 20070831
  Receipt Date: 20070829
  Transmission Date: 20080115
  Serious: Yes (Other)
  Sender: FDA-Public Use
  Company Number: US-BRISTOL-MYERS SQUIBB COMPANY-12825220

PATIENT
  Age: 53 Year
  Sex: Female

DRUGS (11)
  1. ESTRACE [Suspect]
     Indication: HORMONE THERAPY
  2. PREMPRO [Suspect]
     Indication: HORMONE THERAPY
     Route: 048
     Dates: start: 19970304
  3. PREMARIN [Suspect]
     Indication: HORMONE THERAPY
  4. PROVERA [Suspect]
     Indication: HORMONE THERAPY
  5. ESTROGEN [Suspect]
     Indication: HORMONE THERAPY
  6. MEDROXYPROGESTERONE ACETATE [Suspect]
     Indication: HORMONE THERAPY
  7. PRAMOSONE [Suspect]
     Dates: start: 19970304
  8. ALPRAZOLAM [Concomitant]
     Dosage: 0.5 MG 1/2 B.I.D.
  9. DONNATAL [Concomitant]
  10. CALCIUM [Concomitant]
  11. CLONIDINE [Concomitant]

REACTIONS (3)
  - BREAST CANCER [None]
  - DEPRESSION [None]
  - SOMATISATION DISORDER [None]
